FAERS Safety Report 23776456 (Version 3)
Quarter: 2025Q1

REPORT INFORMATION
  Report Type: Report from Study
  Country: CN (occurrence: CN)
  Receive Date: 20240424
  Receipt Date: 20250219
  Transmission Date: 20250409
  Serious: Yes (Hospitalization, Other)
  Sender: ROCHE
  Company Number: CN-ROCHE-3524578

PATIENT
  Age: 37 Year
  Sex: Male
  Weight: 97 kg

DRUGS (30)
  1. POLATUZUMAB VEDOTIN [Suspect]
     Active Substance: POLATUZUMAB VEDOTIN
     Indication: Diffuse large B-cell lymphoma
     Route: 040
     Dates: start: 20240211, end: 20240211
  2. RITUXIMAB [Suspect]
     Active Substance: RITUXIMAB
     Indication: Diffuse large B-cell lymphoma
     Route: 040
     Dates: start: 20240211, end: 20240211
  3. DOXORUBICIN [Suspect]
     Active Substance: DOXORUBICIN
     Indication: Diffuse large B-cell lymphoma
     Route: 040
     Dates: end: 20240216
  4. CYCLOPHOSPHAMIDE [Suspect]
     Active Substance: CYCLOPHOSPHAMIDE
     Indication: Diffuse large B-cell lymphoma
     Route: 040
     Dates: end: 20240215
  5. ETOPOSIDE [Suspect]
     Active Substance: ETOPOSIDE
     Indication: Diffuse large B-cell lymphoma
     Route: 040
     Dates: start: 20240211, end: 20240211
  6. PREDNISONE [Suspect]
     Active Substance: PREDNISONE
     Indication: Diffuse large B-cell lymphoma
     Route: 040
     Dates: start: 20240211, end: 20240211
  7. LOXOPROFEN SODIUM [Concomitant]
     Active Substance: LOXOPROFEN SODIUM
     Route: 048
     Dates: start: 20240302, end: 20240302
  8. LOXOPROFEN SODIUM [Concomitant]
     Active Substance: LOXOPROFEN SODIUM
     Route: 048
     Dates: start: 20240325, end: 20240326
  9. Tablet Loratadine [Concomitant]
     Route: 048
     Dates: start: 20240302, end: 20240302
  10. Tablet Loratadine [Concomitant]
     Route: 048
     Dates: start: 20240325, end: 20240325
  11. PANTOPRAZOLE SODIUM I.V. [Concomitant]
     Active Substance: PANTOPRAZOLE SODIUM
     Route: 040
     Dates: start: 20240302, end: 20240307
  12. PANTOPRAZOLE SODIUM I.V. [Concomitant]
     Active Substance: PANTOPRAZOLE SODIUM
     Route: 040
     Dates: start: 20240308, end: 20240311
  13. Magnesium Isoglycyrrhizinate injection [Concomitant]
     Route: 040
     Dates: start: 20240302, end: 20240307
  14. Magnesium Isoglycyrrhizinate injection [Concomitant]
     Route: 040
     Dates: start: 20240308, end: 20240311
  15. Magnesium Isoglycyrrhizinate injection [Concomitant]
     Route: 040
     Dates: start: 20240325, end: 20240327
  16. Azasetron Hydrochloride Injection [Concomitant]
     Route: 040
     Dates: start: 20240308, end: 20240308
  17. Azasetron Hydrochloride Injection [Concomitant]
     Route: 040
     Dates: start: 20240326, end: 20240326
  18. Azasetron Hydrochloride Injection [Concomitant]
     Route: 040
     Dates: start: 20240303, end: 20240307
  19. EPIRUBICIN HYDROCHLORIDE [Concomitant]
     Active Substance: EPIRUBICIN HYDROCHLORIDE
     Route: 040
     Dates: start: 20240326, end: 20240326
  20. PREDNISONE ACETATE [Concomitant]
     Active Substance: PREDNISONE ACETATE
     Route: 048
     Dates: start: 20240326, end: 20240326
  21. PREDNISONE ACETATE [Concomitant]
     Active Substance: PREDNISONE ACETATE
     Route: 048
     Dates: start: 20240326, end: 20240326
  22. ROXATIDINE ACETATE HYDROCHLORIDE [Concomitant]
     Active Substance: ROXATIDINE ACETATE HYDROCHLORIDE
     Route: 040
     Dates: start: 20240326, end: 20240326
  23. ROXATIDINE ACETATE HYDROCHLORIDE [Concomitant]
     Active Substance: ROXATIDINE ACETATE HYDROCHLORIDE
     Route: 040
     Dates: start: 20240326, end: 20240327
  24. POTASSIUM CHLORIDE [Concomitant]
     Active Substance: POTASSIUM CHLORIDE
     Route: 040
     Dates: start: 20240326, end: 20240327
  25. SODIUM CHLORIDE [Concomitant]
     Active Substance: SODIUM CHLORIDE
     Route: 040
     Dates: start: 20240326, end: 20240327
  26. AMINO ACIDS, SOURCE UNSPECIFIED [Concomitant]
     Active Substance: AMINO ACIDS, SOURCE UNSPECIFIED
     Route: 040
     Dates: start: 20240326, end: 20240327
  27. Imipenem and cilastatin sodium injection [Concomitant]
     Route: 040
     Dates: start: 20240327, end: 20240327
  28. Dexamethasone Sodium Phosphate injection Solution [Concomitant]
     Route: 040
     Dates: start: 20240325, end: 20240325
  29. MEPERIDINE HYDROCHLORIDE [Concomitant]
     Active Substance: MEPERIDINE HYDROCHLORIDE
     Route: 040
     Dates: start: 20240326, end: 20240326
  30. Somatostatin for injection [Concomitant]
     Route: 040
     Dates: start: 20240326, end: 20240326

REACTIONS (11)
  - Anaemia [Not Recovered/Not Resolved]
  - Hypoalbuminaemia [Not Recovered/Not Resolved]
  - Small intestinal perforation [Recovered/Resolved]
  - Platelet count decreased [Recovered/Resolved]
  - Blood lactate dehydrogenase increased [Not Recovered/Not Resolved]
  - Leukopenia [Recovered/Resolved]
  - Lymphocyte count decreased [Not Recovered/Not Resolved]
  - Neutrophil count decreased [Recovered/Resolved]
  - White blood cell count decreased [Not Recovered/Not Resolved]
  - Abdominal pain [Recovered/Resolved]
  - Pyrexia [Recovered/Resolved]

NARRATIVE: CASE EVENT DATE: 20240211
